FAERS Safety Report 19741943 (Version 1)
Quarter: 2021Q3

REPORT INFORMATION
  Report Type: Spontaneous
  Country: IT (occurrence: IT)
  Receive Date: 20210824
  Receipt Date: 20210824
  Transmission Date: 20211014
  Serious: No
  Sender: FDA-Public Use
  Company Number: IT-LUPIN PHARMACEUTICALS INC.-2021-15583

PATIENT
  Age: 61 Year
  Sex: Male

DRUGS (6)
  1. MESOGLYCAN [Concomitant]
     Indication: DEAFNESS NEUROSENSORY
     Dosage: 50 MILLIGRAM, BID
     Route: 048
     Dates: start: 2020
  2. PREDNISONE. [Suspect]
     Active Substance: PREDNISONE
     Indication: COVID-19
     Dosage: UNK
     Route: 048
     Dates: start: 202009
  3. PARACETAMOL [Concomitant]
     Active Substance: ACETAMINOPHEN
     Indication: PRODUCT USED FOR UNKNOWN INDICATION
     Dosage: 1000 MILLIGRAM (UP TO THREE TIMES A DAY)
     Route: 048
     Dates: start: 2020
  4. ENOXAPARIN [Concomitant]
     Active Substance: ENOXAPARIN
     Indication: CARDIOVASCULAR DISORDER
     Dosage: 4000 INTERNATIONAL UNIT, BID
     Route: 065
     Dates: start: 202009
  5. PREDNISONE. [Suspect]
     Active Substance: PREDNISONE
     Indication: DEAFNESS NEUROSENSORY
     Dosage: 60 MILLIGRAM, QD
     Route: 048
     Dates: start: 2020
  6. AZITHROMYCIN ANHYDROUS. [Suspect]
     Active Substance: AZITHROMYCIN ANHYDROUS
     Indication: COVID-19
     Dosage: 500 MILLIGRAM, QD
     Route: 048
     Dates: start: 202009

REACTIONS (1)
  - Off label use [Unknown]

NARRATIVE: CASE EVENT DATE: 2020
